FAERS Safety Report 5075937-3 (Version None)
Quarter: 2006Q3

REPORT INFORMATION
  Report Type: 
  Country: None (occurrence: None)
  Receive Date: 20060808
  Receipt Date: 20060808
  Transmission Date: 20061208
  Serious: Yes (Hospitalization)
  Sender: FDA-Public Use
  Company Number: None

PATIENT
  Age: 58 Year
  Sex: Male
  Weight: 129.5 kg

DRUGS (19)
  1. PANGLOBULIN [Suspect]
     Indication: DEMYELINATING POLYNEUROPATHY
     Dosage: 0.4 G/KG/DAY
     Dates: start: 20060504, end: 20060507
  2. ALLOPURINOL [Concomitant]
  3. DOXAZOSIN [Concomitant]
  4. GLIMEPIRIDE [Concomitant]
  5. HYDROCHLOROTHIAZIDE [Concomitant]
  6. FUROSEMIDE [Concomitant]
  7. FLUVASTATIN XL [Concomitant]
  8. LEVOTHYROXINE SODIUM [Concomitant]
  9. METFORMIN [Concomitant]
  10. METHOCARBAMOL [Concomitant]
  11. MELOXICAM [Concomitant]
  12. VOXX [Concomitant]
  13. CELEBREX [Concomitant]
  14. PROPOXYPHENE HYDROCHLORIDE [Concomitant]
  15. FLUOXETINE [Concomitant]
  16. QUINAPRIL [Concomitant]
  17. RALOXIFINE [Concomitant]
  18. NISOLDIPINE [Concomitant]
  19. SILDENAFIL CITRATE [Concomitant]

REACTIONS (3)
  - DYSPNOEA [None]
  - HAEMODIALYSIS [None]
  - RENAL FAILURE ACUTE [None]
